FAERS Safety Report 18751777 (Version 2)
Quarter: 2021Q1

REPORT INFORMATION
  Report Type: Spontaneous
  Country: NZ (occurrence: NZ)
  Receive Date: 20210118
  Receipt Date: 20210128
  Transmission Date: 20210419
  Serious: Yes (Hospitalization, Other)
  Sender: FDA-Public Use
  Company Number: NZ-B.I. PHARMACEUTICALS,INC./RIDGEFIELD-2021-BI-075829

PATIENT
  Age: 57 Year
  Sex: Female

DRUGS (2)
  1. JARDIANCE [Suspect]
     Active Substance: EMPAGLIFLOZIN
     Indication: TYPE 2 DIABETES MELLITUS
     Dosage: STARTED JARDIANCE 10 MG AND INCREASED TO 20MG ON AN UNKNOWN DATE.  NOT CLEAR WHAT DOSE PATIENT WAS T
     Route: 048
     Dates: start: 20201221
  2. JARDIANCE [Suspect]
     Active Substance: EMPAGLIFLOZIN
     Dosage: (TOOK 2 TABLETS OF 10MG)
     Dates: start: 20201228, end: 20210106

REACTIONS (4)
  - Urine abnormality [Recovered/Resolved]
  - Intentional product use issue [Recovered/Resolved]
  - Weight decreased [Unknown]
  - Diabetic ketoacidosis [Recovered/Resolved]

NARRATIVE: CASE EVENT DATE: 20201228
